FAERS Safety Report 15408112 (Version 1)
Quarter: 2018Q3

REPORT INFORMATION
  Report Type: Spontaneous
  Country: AU (occurrence: AU)
  Receive Date: 20180920
  Receipt Date: 20180920
  Transmission Date: 20181010
  Serious: Yes (Hospitalization)
  Sender: FDA-Public Use
  Company Number: AU-JNJFOC-20180912500

PATIENT
  Age: 38 Year
  Sex: Male

DRUGS (2)
  1. RISPERDAL CONSTA [Suspect]
     Active Substance: RISPERIDONE
     Indication: SCHIZOAFFECTIVE DISORDER
     Route: 065
  2. FLUPENTHIXOL [Suspect]
     Active Substance: FLUPENTIXOL
     Indication: SCHIZOAFFECTIVE DISORDER
     Route: 065

REACTIONS (4)
  - Drug abuser [Unknown]
  - Condition aggravated [Unknown]
  - Incorrect dose administered [Unknown]
  - Off label use [Unknown]
